FAERS Safety Report 18676983 (Version 1)
Quarter: 2020Q4

REPORT INFORMATION
  Report Type: Spontaneous
  Country: MY (occurrence: MY)
  Receive Date: 20201229
  Receipt Date: 20201229
  Transmission Date: 20210114
  Serious: Yes (Other)
  Sender: FDA-Public Use
  Company Number: MY-MYLANLABS-2020M1104541

PATIENT
  Age: 17 Year
  Sex: Male

DRUGS (2)
  1. CELOVAN [Suspect]
     Active Substance: VANCOMYCIN
     Indication: STAPHYLOCOCCAL INFECTION
     Dosage: 1 GRAM, Q8H
     Route: 042
  2. CELOVAN [Suspect]
     Active Substance: VANCOMYCIN
     Indication: ANTIBIOTIC THERAPY
     Dosage: 500 MILLIGRAM, Q6H
     Route: 042

REACTIONS (4)
  - Rash [Recovered/Resolved]
  - Febrile neutropenia [Recovering/Resolving]
  - Pruritus [Recovered/Resolved]
  - Palpitations [Recovered/Resolved]
